FAERS Safety Report 22322833 (Version 1)
Quarter: 2023Q2

REPORT INFORMATION
  Report Type: Spontaneous
  Country: US (occurrence: US)
  Receive Date: 20230516
  Receipt Date: 20230516
  Transmission Date: 20230721
  Serious: No
  Sender: FDA-Public Use
  Company Number: US-Axsome Therapeutics, Inc.-AXS202211-000113

PATIENT
  Age: 48 Year
  Weight: 83.082 kg

DRUGS (16)
  1. SUNOSI [Suspect]
     Active Substance: SOLRIAMFETOL
     Indication: Narcolepsy
     Dosage: 1 PILL IN AM
     Route: 048
     Dates: start: 20220318
  2. SUNOSI [Suspect]
     Active Substance: SOLRIAMFETOL
     Indication: Cataplexy
  3. ASPIRIN [Concomitant]
     Active Substance: ASPIRIN
     Dosage: TAKE 1 TABLET DAILY
     Route: 048
     Dates: start: 20200828
  4. B-12 Active [Concomitant]
     Route: 048
     Dates: start: 20220228
  5. ESCITALOPRAM OXALATE [Concomitant]
     Active Substance: ESCITALOPRAM OXALATE
     Route: 048
     Dates: start: 20220223
  6. JARDIANCE [Concomitant]
     Active Substance: EMPAGLIFLOZIN
     Route: 048
     Dates: start: 20220817
  7. Multivitamin women [Concomitant]
     Dosage: TAKE 1 TABLET DAILY
     Route: 048
     Dates: start: 20210226
  8. NITROFURANTOIN Monohydra Macro [Concomitant]
     Dosage: TAKE 1 CAPSULE TWICE DAILY WITH MEALS
     Route: 048
     Dates: start: 20220714
  9. PANTOPRAZOLE SODIUM [Concomitant]
     Active Substance: PANTOPRAZOLE SODIUM
     Dosage: TAKE 1 TABLET DAILY
     Route: 048
     Dates: start: 20200512
  10. PROBIOTICS NOS [Concomitant]
     Active Substance: PROBIOTICS NOS
     Route: 048
     Dates: start: 20220228
  11. PYRIDIUM [Concomitant]
     Active Substance: PHENAZOPYRIDINE
     Dosage: TAKE 1 TABLET EEVRY 8 HOURS PRN
     Route: 048
     Dates: start: 20220714
  12. Rosuvastatin Sodium [Concomitant]
     Dosage: TAKE 1 TABLET BY MOUTH EVERYDAY AT BEDTIME
     Route: 048
     Dates: start: 20211011
  13. SULFAMETHOXAZOLE\TRIMETHOPRIM [Concomitant]
     Active Substance: SULFAMETHOXAZOLE\TRIMETHOPRIM
     Dosage: 800-160 MG
     Route: 048
     Dates: start: 20220620
  14. SYNTHROID [Concomitant]
     Active Substance: LEVOTHYROXINE SODIUM
     Dosage: TAKE 1 TABLET EVERY DAY AS DIRECTED
     Route: 048
     Dates: start: 20151026
  15. HERBALS\TURMERIC [Concomitant]
     Active Substance: HERBALS\TURMERIC
     Dates: start: 20220228
  16. VITAMIN D3 [Concomitant]
     Active Substance: CHOLECALCIFEROL
     Route: 048
     Dates: start: 20210226

REACTIONS (1)
  - Therapeutic product effect incomplete [Unknown]
